FAERS Safety Report 5191035-2 (Version None)
Quarter: 2006Q4

REPORT INFORMATION
  Report Type: 
  Country: None (occurrence: None)
  Receive Date: 20061218
  Receipt Date: 20061204
  Transmission Date: 20070319
  Serious: Yes (Life-Threatening, Hospitalization)
  Sender: FDA-Public Use
  Company Number: DE-2006-038160

PATIENT
  Age: 66 Year
  Sex: Female
  Weight: 105 kg

DRUGS (18)
  1. MAGNEVIST [Suspect]
     Indication: ANGIOGRAM
     Dosage: 1 DOSE,
     Dates: start: 20050126, end: 20050126
  2. NOVORAPID (INSULIN ASPART) [Concomitant]
  3. LAXOBERAL ^BOEHRINGER INGELHEIM^ (SODIUM PICOSULFATE) [Concomitant]
  4. DEKRISTOL [Concomitant]
  5. VITAMINS WITH MINERALS [Concomitant]
  6. SODIUM BICARBONATE IN PLASTIC CONTAINER [Concomitant]
  7. CALCIUM ACETATE (CALCIUM ACETATE) [Concomitant]
  8. DIGITOXIN TAB [Concomitant]
  9. MARCUMAR [Concomitant]
  10. INSULIN BASAL (INSULIN ISOPHANE HUMAN SEMISYNTHETIC) [Concomitant]
  11. PANTOZOL (PANTOPRAZOLE SODIUM) [Concomitant]
  12. CERTOPARIN SODIUM /01691801/ (CERTOPARIN SODIUM) [Concomitant]
  13. TEMAZEPAM [Concomitant]
  14. VALORON N /01617301/ (TILIDINE PHOSPHATE, NALOXONE HYDROCHLORIDE) [Concomitant]
  15. NEURONTIN [Concomitant]
  16. MAGNESIUM VERLA DRAGEES (MAGNESIUM CITRATE, MAGNESIUM NICOTINATE, MAGN [Concomitant]
  17. FERRLECIT /GFR/ (FERRIC SODIUM GLUCONATE COMPLEX) [Concomitant]
  18. ARANESP [Concomitant]

REACTIONS (4)
  - C-REACTIVE PROTEIN INCREASED [None]
  - CARDIOVASCULAR DISORDER [None]
  - CHILLS [None]
  - SEPSIS [None]
